FAERS Safety Report 23998059 (Version 3)
Quarter: 2024Q3

REPORT INFORMATION
  Report Type: Report from Study
  Country: US (occurrence: US)
  Receive Date: 20240621
  Receipt Date: 20240821
  Transmission Date: 20241016
  Serious: Yes (Other)
  Sender: GILEAD
  Company Number: US-GILEAD-2024-0677868

PATIENT
  Age: 57 Year
  Sex: Male
  Weight: 94.8 kg

DRUGS (6)
  1. AMBRISENTAN [Suspect]
     Active Substance: AMBRISENTAN
     Indication: Pulmonary arterial hypertension
     Dosage: 10 MG, QD
     Route: 065
     Dates: start: 201801
  2. UPTRAVI [Suspect]
     Active Substance: SELEXIPAG
     Indication: Pulmonary arterial hypertension
     Dosage: 600 UG, BID
     Route: 065
     Dates: start: 202107
  3. TADALAFIL [Concomitant]
     Active Substance: TADALAFIL
     Indication: Hypertension
     Route: 048
  4. COUMADIN [Concomitant]
     Active Substance: WARFARIN SODIUM
     Dosage: 6 MG TABLET
  5. NEXIUM I.V. [Concomitant]
     Active Substance: ESOMEPRAZOLE SODIUM
     Dosage: 40 MG TABLET
  6. SELEXIPAG [Concomitant]
     Active Substance: SELEXIPAG
     Dosage: 600 UG TABLET

REACTIONS (4)
  - Bendopnoea [Unknown]
  - Dyspnoea exertional [Unknown]
  - Joint swelling [Unknown]
  - Peripheral swelling [Unknown]
